FAERS Safety Report 19105436 (Version 1)
Quarter: 2021Q2

REPORT INFORMATION
  Report Type: Spontaneous
  Country: US (occurrence: US)
  Receive Date: 20210407
  Receipt Date: 20210407
  Transmission Date: 20210717
  Serious: Yes (Other)
  Sender: FDA-Public Use
  Company Number: US-MALLINCKRODT PHARMACEUTICALS-T202101426

PATIENT
  Sex: Male

DRUGS (1)
  1. H.P. ACTHAR [Suspect]
     Active Substance: CORTICOTROPIN
     Indication: IMMUNOSUPPRESSION
     Dosage: 0.25 MILLILITER (20 UNITS PER DOSE), WEEKLY
     Route: 058

REACTIONS (1)
  - Nephrotic syndrome [Unknown]
